FAERS Safety Report 10177688 (Version 1)
Quarter: 2014Q2

REPORT INFORMATION
  Report Type: Spontaneous
  Country: US (occurrence: US)
  Receive Date: 20140516
  Receipt Date: 20140516
  Transmission Date: 20141212
  Serious: Yes (Other)
  Sender: FDA-Public Use
  Company Number: US-SA-2014SA012650

PATIENT
  Sex: Male

DRUGS (2)
  1. APIDRA [Suspect]
     Dosage: DOSE:18 UNIT(S)
     Route: 058
  2. LANTUS [Suspect]
     Route: 058

REACTIONS (4)
  - Hypoglycaemia [Unknown]
  - Asthenia [Unknown]
  - Wrong drug administered [Unknown]
  - Blood glucose increased [Unknown]
